FAERS Safety Report 24441133 (Version 2)
Quarter: 2024Q4

REPORT INFORMATION
  Report Type: Report from Study
  Country: US (occurrence: US)
  Receive Date: 20241016
  Receipt Date: 20241017
  Transmission Date: 20250115
  Serious: No
  Sender: ROCHE
  Company Number: US-ROCHE-3455760

PATIENT
  Age: 67 Year
  Sex: Female

DRUGS (2)
  1. HEMLIBRA [Suspect]
     Active Substance: EMICIZUMAB-KXWH
     Indication: Haemophilia
     Dosage: INJECT 474MG SUBCUTANEOUSLY (USE 2.8ML FROM 4-105MG VIALS AND 0.36ML FROM 1-60MG VIAL)
     Route: 058
  2. HEMLIBRA [Suspect]
     Active Substance: EMICIZUMAB-KXWH
     Indication: Von Willebrand^s disease
     Dosage: INJECT 474MG SUBCUTANEOUSLY (USE 2.8ML FROM 4-105MG VIALS AND 0.36ML FROM 1-60MG VIAL)
     Route: 058

REACTIONS (3)
  - Product dispensing error [Unknown]
  - Incorrect dose administered [Unknown]
  - Pain in extremity [Unknown]
